FAERS Safety Report 5470617-4 (Version None)
Quarter: 2007Q3

REPORT INFORMATION
  Report Type: 
  Country: None (occurrence: None)
  Receive Date: 20070927
  Receipt Date: 20070927
  Transmission Date: 20080115
  Serious: No
  Sender: FDA-Public Use
  Company Number: None

PATIENT
  Age: 44 Year
  Sex: Male

DRUGS (2)
  1. AVELOX [Suspect]
     Dates: start: 20060514, end: 20060523
  2. ULTRAM [Concomitant]

REACTIONS (4)
  - LIVER FUNCTION TEST ABNORMAL [None]
  - LIVER INJURY [None]
  - STEVENS-JOHNSON SYNDROME [None]
  - TOXIC EPIDERMAL NECROLYSIS [None]
